FAERS Safety Report 6126115-8 (Version None)
Quarter: 2009Q1

REPORT INFORMATION
  Report Type: 
  Country: None (occurrence: None)
  Receive Date: 20090320
  Receipt Date: 20090313
  Transmission Date: 20090719
  Serious: Yes (Other)
  Sender: FDA-Public Use
  Company Number: A0725145A

PATIENT
  Age: 58 Year
  Sex: Male
  Weight: 100 kg

DRUGS (8)
  1. AVANDIA [Suspect]
     Dosage: 8MG PER DAY
     Route: 048
     Dates: start: 20050608, end: 20080408
  2. LIPITOR [Concomitant]
  3. ZOCOR [Concomitant]
  4. ZETIA [Concomitant]
  5. METFORMIN HCL [Concomitant]
  6. PLAVIX [Concomitant]
  7. ATORVASTATIN [Concomitant]
  8. SIMVASTATIN [Concomitant]

REACTIONS (2)
  - CARDIAC FAILURE CONGESTIVE [None]
  - HEART INJURY [None]
